FAERS Safety Report 15216343 (Version 1)
Quarter: 2018Q3

REPORT INFORMATION
  Report Type: Spontaneous
  Country: FR (occurrence: FR)
  Receive Date: 20180730
  Receipt Date: 20180730
  Transmission Date: 20181010
  Serious: Yes (Death)
  Sender: FDA-Public Use
  Company Number: PHHY2018FR060035

PATIENT
  Age: 47 Year
  Sex: Female
  Weight: 69 kg

DRUGS (1)
  1. REVOLADE [Suspect]
     Active Substance: ELTROMBOPAG
     Indication: IMMUNE THROMBOCYTOPENIC PURPURA
     Dosage: 75 MG, UNK
     Route: 048
     Dates: start: 20171201, end: 20180421

REACTIONS (1)
  - Cerebral venous thrombosis [Fatal]

NARRATIVE: CASE EVENT DATE: 20180421
